FAERS Safety Report 22242469 (Version 3)
Quarter: 2023Q2

REPORT INFORMATION
  Report Type: Spontaneous
  Country: US (occurrence: None)
  Receive Date: 20230422
  Receipt Date: 20230530
  Transmission Date: 20230721
  Serious: No
  Sender: FDA-Public Use
  Company Number: 2023A073868

PATIENT
  Sex: Male
  Weight: 124.7 kg

DRUGS (2)
  1. BYDUREON BCISE [Suspect]
     Active Substance: EXENATIDE
     Indication: Type 2 diabetes mellitus
     Route: 058
  2. BYDUREON [Suspect]
     Active Substance: EXENATIDE
     Indication: Type 2 diabetes mellitus
     Dosage: TAKING 1 PEN ONCE A WEEK
     Route: 058

REACTIONS (3)
  - Injection site haemorrhage [Unknown]
  - Drug dose omission by device [Unknown]
  - Device delivery system issue [Unknown]
